FAERS Safety Report 5074847-5 (Version None)
Quarter: 2006Q3

REPORT INFORMATION
  Report Type: 
  Country: None (occurrence: None)
  Receive Date: 20060804
  Receipt Date: 20060724
  Transmission Date: 20061208
  Serious: Yes (Other)
  Sender: FDA-Public Use
  Company Number: US-2006-020239

PATIENT
  Age: 16 Year
  Sex: 0

DRUGS (1)
  1. BETASERON [Suspect]
     Indication: MULTIPLE SCLEROSIS
     Dosage: 2 MIU, 2X/WEEK, SUBCUTANEOUS
     Route: 058
     Dates: start: 20060716

REACTIONS (2)
  - FACIAL PALSY [None]
  - FATIGUE [None]
